FAERS Safety Report 16223096 (Version 1)
Quarter: 2019Q2

REPORT INFORMATION
  Report Type: Spontaneous
  Country: SI (occurrence: SI)
  Receive Date: 20190422
  Receipt Date: 20190422
  Transmission Date: 20190711
  Serious: Yes (Other)
  Sender: FDA-Public Use
  Company Number: SI-PFIZER INC-2019167520

PATIENT
  Sex: Female
  Weight: .82 kg

DRUGS (9)
  1. AZITHROMYCIN ANHYDROUS. [Suspect]
     Active Substance: AZITHROMYCIN ANHYDROUS
     Indication: PNEUMONIA
     Dosage: UNK
     Route: 064
  2. CEFEPIM [Suspect]
     Active Substance: CEFEPIME HYDROCHLORIDE
     Indication: PNEUMONIA
     Dosage: UNK
     Route: 064
  3. CILASTATIN/IMIPENEM [Suspect]
     Active Substance: CILASTATIN SODIUM\IMIPENEM
     Indication: PNEUMONIA
     Dosage: UNK
     Route: 064
  4. VANCOMYCIN HCL [Suspect]
     Active Substance: VANCOMYCIN HYDROCHLORIDE
     Indication: PNEUMONIA
     Dosage: UNK
     Route: 064
  5. CEFTRIAXONE. [Suspect]
     Active Substance: CEFTRIAXONE
     Indication: PNEUMONIA
     Dosage: UNK
     Route: 064
  6. AMPHOTERICIN B. [Suspect]
     Active Substance: AMPHOTERICIN B
     Indication: PNEUMONIA
     Dosage: UNK
     Route: 064
  7. BETAMETHASONE. [Suspect]
     Active Substance: BETAMETHASONE
     Indication: MATERNAL THERAPY TO ENHANCE FOETAL LUNG MATURITY
     Dosage: UNK(LUNG MATURATION AT 24 WEEKS)
     Route: 064
  8. OSELTAMIVIR [Suspect]
     Active Substance: OSELTAMIVIR
     Indication: PNEUMONIA
     Dosage: UNK
     Route: 064
  9. SEVOFLURANE. [Suspect]
     Active Substance: SEVOFLURANE
     Indication: PNEUMONIA
     Dosage: UNK
     Route: 064

REACTIONS (2)
  - Mania [Unknown]
  - Maternal exposure during pregnancy [Unknown]
